FAERS Safety Report 23799743 (Version 1)
Quarter: 2024Q2

REPORT INFORMATION
  Report Type: Spontaneous
  Country: US (occurrence: None)
  Receive Date: 20240429
  Receipt Date: 20240429
  Transmission Date: 20240716
  Serious: Yes (Hospitalization)
  Sender: FDA-Public Use
  Company Number: None

PATIENT
  Age: 73 Year
  Sex: Male
  Weight: 147 kg

DRUGS (1)
  1. DABIGATRAN ETEXILATE [Suspect]
     Active Substance: DABIGATRAN ETEXILATE
     Indication: Deep vein thrombosis
     Dosage: FREQUENCY : TWICE A DAY;?
     Route: 048
     Dates: start: 20210710, end: 20221213

REACTIONS (6)
  - Pulmonary embolism [None]
  - Chest pain [None]
  - Dizziness [None]
  - Pain in extremity [None]
  - QRS axis abnormal [None]
  - Fibrin D dimer increased [None]

NARRATIVE: CASE EVENT DATE: 20221213
